APPROVED DRUG PRODUCT: REVEX
Active Ingredient: NALMEFENE HYDROCHLORIDE
Strength: EQ 2MG BASE/2ML (EQ 1MG BASE/ML) **Federal Register determination that product was not discontinued or withdrawn for safety or effectiveness reasons**
Dosage Form/Route: SOLUTION;INTRAMUSCULAR, INTRAVENOUS, SUBCUTANEOUS
Application: N020459 | Product #002
Applicant: HIKMA PHARMACEUTICALS USA INC
Approved: Apr 17, 1995 | RLD: Yes | RS: No | Type: DISCN